FAERS Safety Report 12179196 (Version 1)
Quarter: 2016Q1

REPORT INFORMATION
  Report Type: Spontaneous
  Country: PK (occurrence: PK)
  Receive Date: 20160315
  Receipt Date: 20160315
  Transmission Date: 20160526
  Serious: Yes (Death, Life-Threatening, Other)
  Sender: FDA-Public Use
  Company Number: PK-ASTELLAS-2016US009587

PATIENT
  Age: 58 Year
  Sex: Male

DRUGS (2)
  1. TARCEVA [Suspect]
     Active Substance: ERLOTINIB HYDROCHLORIDE
     Indication: LUNG NEOPLASM MALIGNANT
     Route: 048
     Dates: start: 20160129
  2. TARCEVA [Suspect]
     Active Substance: ERLOTINIB HYDROCHLORIDE
     Route: 048
     Dates: end: 20160228

REACTIONS (4)
  - Vomiting [Fatal]
  - Pneumonia aspiration [Fatal]
  - Swelling [Recovered/Resolved]
  - Dyspnoea [Fatal]

NARRATIVE: CASE EVENT DATE: 20160201
